FAERS Safety Report 16300965 (Version 3)
Quarter: 2022Q1

REPORT INFORMATION
  Report Type: Spontaneous
  Country: US (occurrence: None)
  Receive Date: 20190510
  Receipt Date: 20220104
  Transmission Date: 20220423
  Serious: Yes (Hospitalization, Other)
  Sender: FDA-Public Use
  Company Number: 2019SE65753

PATIENT
  Age: 17150 Day
  Sex: Female
  Weight: 126.6 kg

DRUGS (97)
  1. PRILOSEC [Suspect]
     Active Substance: OMEPRAZOLE MAGNESIUM
     Indication: Gastrooesophageal reflux disease
     Route: 048
     Dates: start: 201001, end: 201312
  2. PRILOSEC [Suspect]
     Active Substance: OMEPRAZOLE MAGNESIUM
     Indication: Gastrooesophageal reflux disease
     Route: 048
     Dates: start: 201001, end: 201312
  3. PRILOSEC [Suspect]
     Active Substance: OMEPRAZOLE MAGNESIUM
     Indication: Gastrooesophageal reflux disease
     Route: 048
     Dates: start: 201311, end: 2018
  4. PRILOSEC [Suspect]
     Active Substance: OMEPRAZOLE MAGNESIUM
     Indication: Gastrooesophageal reflux disease
     Route: 048
     Dates: start: 201311, end: 2018
  5. PRILOSEC [Suspect]
     Active Substance: OMEPRAZOLE MAGNESIUM
     Indication: Gastrooesophageal reflux disease
     Dosage: GENERIC
     Route: 065
     Dates: start: 20140517
  6. PRILOSEC [Suspect]
     Active Substance: OMEPRAZOLE MAGNESIUM
     Indication: Gastrooesophageal reflux disease
     Dosage: GENERIC
     Route: 065
     Dates: start: 20140517
  7. PRILOSEC OTC [Suspect]
     Active Substance: OMEPRAZOLE MAGNESIUM
     Indication: Gastrooesophageal reflux disease
     Route: 048
     Dates: start: 201001, end: 201312
  8. PRILOSEC OTC [Suspect]
     Active Substance: OMEPRAZOLE MAGNESIUM
     Indication: Gastrooesophageal reflux disease
     Route: 048
     Dates: start: 201001, end: 201312
  9. PRILOSEC OTC [Suspect]
     Active Substance: OMEPRAZOLE MAGNESIUM
     Indication: Gastrooesophageal reflux disease
     Route: 048
     Dates: start: 201311
  10. PRILOSEC OTC [Suspect]
     Active Substance: OMEPRAZOLE MAGNESIUM
     Indication: Gastrooesophageal reflux disease
     Route: 048
     Dates: start: 201311
  11. NAPROXEN [Concomitant]
     Active Substance: NAPROXEN
     Indication: Pain
     Dates: start: 200311, end: 200311
  12. NAPROXEN [Concomitant]
     Active Substance: NAPROXEN
     Indication: Pain
     Dates: start: 200711, end: 200711
  13. MELOXICAM [Concomitant]
     Active Substance: MELOXICAM
     Indication: Pain
     Dates: start: 201211, end: 201211
  14. LISINOPRIL [Concomitant]
     Active Substance: LISINOPRIL
     Indication: Hypertension
     Dates: start: 200411, end: 200811
  15. LISINOPRIL [Concomitant]
     Active Substance: LISINOPRIL
     Indication: Hypertension
     Dates: start: 201211, end: 201305
  16. LISINOPRIL [Concomitant]
     Active Substance: LISINOPRIL
     Indication: Hypertension
     Dates: start: 201311, end: 2014
  17. AMITRIPTYLINE [Concomitant]
     Active Substance: AMITRIPTYLINE
     Indication: Pain
     Dates: start: 200504, end: 200603
  18. AMITRIPTYLINE [Concomitant]
     Active Substance: AMITRIPTYLINE
     Indication: Pain
     Dates: start: 201211, end: 201211
  19. AMITRIPTYLINE [Concomitant]
     Active Substance: AMITRIPTYLINE
     Indication: Pain
     Dates: start: 201301, end: 201301
  20. AMITRIPTYLINE [Concomitant]
     Active Substance: AMITRIPTYLINE
     Indication: Pain
     Dates: start: 201901, end: 201901
  21. LIPITOR [Concomitant]
     Active Substance: ATORVASTATIN CALCIUM
     Indication: Blood cholesterol increased
     Dates: start: 200708, end: 200801
  22. TMP/SMZ [Concomitant]
     Indication: Infection
     Dates: start: 200907, end: 200907
  23. TMP/SMZ [Concomitant]
     Indication: Infection
     Dates: start: 201301, end: 201301
  24. TMP/SMZ [Concomitant]
     Indication: Infection
     Dates: start: 201304, end: 201304
  25. TMP/SMZ [Concomitant]
     Indication: Infection
     Dates: start: 201405, end: 201405
  26. TMP/SMZ [Concomitant]
     Indication: Infection
     Dates: start: 201601, end: 201601
  27. DOXYCYCLINE [Concomitant]
     Active Substance: DOXYCYCLINE
     Indication: Infection
     Dates: start: 201303, end: 201303
  28. DOXYCYCLINE [Concomitant]
     Active Substance: DOXYCYCLINE
     Indication: Infection
     Dates: start: 201310, end: 201310
  29. DOXYCYCLINE [Concomitant]
     Active Substance: DOXYCYCLINE
     Indication: Infection
     Dates: start: 201402, end: 201402
  30. DOXYCYCLINE [Concomitant]
     Active Substance: DOXYCYCLINE
     Indication: Infection
     Dates: start: 201410, end: 201410
  31. DOXYCYCLINE [Concomitant]
     Active Substance: DOXYCYCLINE
     Indication: Infection
     Dates: start: 201605, end: 201605
  32. DOXYCYCLINE [Concomitant]
     Active Substance: DOXYCYCLINE
     Indication: Infection
     Dates: start: 201610, end: 201610
  33. DOXYCYCLINE [Concomitant]
     Active Substance: DOXYCYCLINE
     Indication: Infection
     Dates: start: 201701, end: 201702
  34. FUROSEMIDE [Concomitant]
     Active Substance: FUROSEMIDE
     Indication: Cardiac disorder
     Dates: start: 200410, end: 200410
  35. FUROSEMIDE [Concomitant]
     Active Substance: FUROSEMIDE
     Indication: Cardiac disorder
     Dates: start: 200903, end: 200903
  36. FUROSEMIDE [Concomitant]
     Active Substance: FUROSEMIDE
     Indication: Cardiac disorder
     Dates: start: 201304, end: 201306
  37. FUROSEMIDE [Concomitant]
     Active Substance: FUROSEMIDE
     Indication: Cardiac disorder
     Dates: start: 201502, end: 201906
  38. INDOMETHACIN [Concomitant]
     Active Substance: INDOMETHACIN
     Indication: Pain
     Dates: start: 201306, end: 201307
  39. SIMVASTATIN [Concomitant]
     Active Substance: SIMVASTATIN
     Indication: Blood cholesterol increased
     Dates: start: 201307, end: 201405
  40. LEVOFLOXACIN [Concomitant]
     Active Substance: LEVOFLOXACIN
     Indication: Infection
     Dates: start: 201310, end: 201310
  41. LEVOFLOXACIN [Concomitant]
     Active Substance: LEVOFLOXACIN
     Indication: Infection
     Dates: start: 201402, end: 201402
  42. LOSARTAN [Concomitant]
     Active Substance: LOSARTAN
     Indication: Hypertension
     Dates: start: 201503, end: 201509
  43. CIPROFLOXACIN [Concomitant]
     Active Substance: CIPROFLOXACIN
     Indication: Infection
     Dates: start: 200907, end: 200907
  44. CIPROFLOXACIN [Concomitant]
     Active Substance: CIPROFLOXACIN
     Indication: Infection
     Dates: start: 201603, end: 201604
  45. CIPROFLOXACIN [Concomitant]
     Active Substance: CIPROFLOXACIN
     Indication: Infection
     Dates: start: 201710, end: 201711
  46. HYDRALAZINE [Concomitant]
     Active Substance: HYDRALAZINE HYDROCHLORIDE
     Indication: Hypertension
     Dates: start: 201610, end: 201906
  47. BESIVANCE [Concomitant]
     Active Substance: BESIFLOXACIN
  48. ALPRAZOLAM [Concomitant]
     Active Substance: ALPRAZOLAM
  49. ZOLPIDEM [Concomitant]
     Active Substance: ZOLPIDEM TARTRATE
  50. LANTUS [Concomitant]
     Active Substance: INSULIN GLARGINE
  51. NOVOLOG [Concomitant]
     Active Substance: INSULIN ASPART
  52. GABAPENTIN [Concomitant]
     Active Substance: GABAPENTIN
  53. CLINDAMYCIN [Concomitant]
     Active Substance: CLINDAMYCIN
  54. HUMULIN NOS [Concomitant]
     Active Substance: INSULIN HUMAN
  55. AMOX/CLAVULA [Concomitant]
  56. HYDROCHLOROTHIAZIDE [Concomitant]
     Active Substance: HYDROCHLOROTHIAZIDE
  57. COLLAGENASE SANTYL [Concomitant]
     Active Substance: COLLAGENASE CLOSTRIDIUM HISTOLYTICUM
  58. COLCRYS [Concomitant]
     Active Substance: COLCHICINE
  59. ONDANSETRON [Concomitant]
     Active Substance: ONDANSETRON
  60. METOPROLOL [Concomitant]
     Active Substance: METOPROLOL
  61. FLUCONAZOLE [Concomitant]
     Active Substance: FLUCONAZOLE
  62. BRILINTA [Concomitant]
     Active Substance: TICAGRELOR
  63. CLOPIDOGREL [Concomitant]
     Active Substance: CLOPIDOGREL BISULFATE
  64. FENOFIBRATE [Concomitant]
     Active Substance: FENOFIBRATE
  65. BACLOFEN [Concomitant]
     Active Substance: BACLOFEN
  66. NITROFURANTOIN [Concomitant]
     Active Substance: NITROFURANTOIN
  67. DILTIAZEM [Concomitant]
     Active Substance: DILTIAZEM
  68. KLOR-CON [Concomitant]
     Active Substance: POTASSIUM CHLORIDE
  69. LEVEMIR [Concomitant]
     Active Substance: INSULIN DETEMIR
  70. DOXAZOSIN [Concomitant]
     Active Substance: DOXAZOSIN MESYLATE
  71. METHOCARBAMOL [Concomitant]
     Active Substance: METHOCARBAMOL
  72. ALLOPURINOL [Concomitant]
     Active Substance: ALLOPURINOL
  73. EFFIENT [Concomitant]
     Active Substance: PRASUGREL HYDROCHLORIDE
  74. METHYLPREDNISOLONE [Concomitant]
     Active Substance: METHYLPREDNISOLONE
  75. VICTOZA [Concomitant]
     Active Substance: LIRAGLUTIDE
  76. SILVER SULFA CRE [Concomitant]
  77. CITALOPRAM [Concomitant]
     Active Substance: CITALOPRAM HYDROBROMIDE
  78. ENDOCET [Concomitant]
     Active Substance: ACETAMINOPHEN\OXYCODONE HYDROCHLORIDE
  79. CARTIA [Concomitant]
  80. VITAMIN D2 [Concomitant]
     Active Substance: ERGOCALCIFEROL
  81. PROMETHAZINE [Concomitant]
     Active Substance: PROMETHAZINE HYDROCHLORIDE
  82. MEPERIDINE [Concomitant]
     Active Substance: MEPERIDINE
  83. LATANOPROST [Concomitant]
     Active Substance: LATANOPROST
  84. NITROGLYCERIN [Concomitant]
     Active Substance: NITROGLYCERIN
  85. GLYBURIDE [Concomitant]
     Active Substance: GLYBURIDE
  86. NABUMETONE [Concomitant]
     Active Substance: NABUMETONE
  87. ATENOLOL [Concomitant]
     Active Substance: ATENOLOL
  88. TRAZODONE [Concomitant]
     Active Substance: TRAZODONE HYDROCHLORIDE
  89. VYTORIN [Concomitant]
     Active Substance: EZETIMIBE\SIMVASTATIN
  90. ADVICOR [Concomitant]
     Active Substance: LOVASTATIN\NIACIN
  91. PREDNISOLONE ACETATE [Concomitant]
     Active Substance: PREDNISOLONE ACETATE
  92. ASPIRIN [Concomitant]
     Active Substance: ASPIRIN
  93. DAPTOMYCIN [Concomitant]
     Active Substance: DAPTOMYCIN
  94. HEPARIN SODIUM [Concomitant]
     Active Substance: HEPARIN SODIUM
  95. MAGNESIUM OXIDE [Concomitant]
     Active Substance: MAGNESIUM OXIDE
  96. METOPROLOL TARTRATE [Concomitant]
     Active Substance: METOPROLOL TARTRATE
  97. SODIUM CHLORIDE [Concomitant]
     Active Substance: SODIUM CHLORIDE

REACTIONS (4)
  - Chronic kidney disease [Not Recovered/Not Resolved]
  - Acute kidney injury [Unknown]
  - End stage renal disease [Unknown]
  - Nephrogenic anaemia [Unknown]

NARRATIVE: CASE EVENT DATE: 20150407
